FAERS Safety Report 9147241 (Version 1)
Quarter: 2013Q1

REPORT INFORMATION
  Report Type: Report from Study
  Country: US (occurrence: US)
  Receive Date: 20130307
  Receipt Date: 20130307
  Transmission Date: 20140127
  Serious: Yes (Other)
  Sender: FDA-Public Use
  Company Number: US-BAYER-2013-003239

PATIENT
  Age: 59 Year
  Sex: Male
  Weight: 108 kg

DRUGS (3)
  1. NEXAVAR [Suspect]
     Indication: HEPATIC CANCER
     Dosage: 200 MG, BID
     Route: 048
     Dates: start: 20130102, end: 201301
  2. NEXAVAR [Suspect]
     Indication: HEPATIC CANCER
     Dosage: 200MG DAILY
     Dates: start: 201301, end: 20130104
  3. CANNABIS [Concomitant]

REACTIONS (4)
  - Immunodeficiency [Not Recovered/Not Resolved]
  - White blood cell count decreased [None]
  - Fatigue [Not Recovered/Not Resolved]
  - Dysgeusia [Not Recovered/Not Resolved]
